FAERS Safety Report 4979625-0 (Version None)
Quarter: 2006Q2

REPORT INFORMATION
  Report Type: 
  Country: None (occurrence: None)
  Receive Date: 20060418
  Receipt Date: 20060331
  Transmission Date: 20061013
  Serious: Yes (Death, Other)
  Sender: FDA-Public Use
  Company Number: GBS050517476

PATIENT
  Age: 95 Year
  Sex: Female

DRUGS (2)
  1. YENTREVE (DULOXETINE HYDROCHLORIDE) CAPSULE [Suspect]
     Indication: INCONTINENCE
     Dosage: 20 MG, 2/D, ORAL
     Route: 048
     Dates: start: 20050509, end: 20050515
  2. TOLTERODINE TARTRATE [Concomitant]

REACTIONS (6)
  - AGITATION [None]
  - ASTHENIA [None]
  - CONFUSIONAL STATE [None]
  - EMOTIONAL DISTRESS [None]
  - FALL [None]
  - FEELING ABNORMAL [None]
